FAERS Safety Report 6517935-6 (Version None)
Quarter: 2009Q4

REPORT INFORMATION
  Report Type: 
  Country: None (occurrence: None)
  Receive Date: 20091218
  Receipt Date: 20091203
  Transmission Date: 20100525
  Serious: Yes (Disabling, Other)
  Sender: FDA-Public Use
  Company Number: ACO_00624_2009

PATIENT
  Age: 64 Year
  Sex: Female

DRUGS (2)
  1. SIRDALUD /00740702/ (SIRDALUD - TIZANIDINE HYDROCHORIDE) 2 MG (NOT SPE [Suspect]
     Indication: MYALGIA
     Dosage: DF ORAL
     Route: 048
  2. TRAMADOL [Concomitant]

REACTIONS (1)
  - DISORIENTATION [None]
